FAERS Safety Report 7963486-1 (Version None)
Quarter: 2011Q4

REPORT INFORMATION
  Report Type: 
  Country: None (occurrence: None)
  Receive Date: 20111205
  Receipt Date: 20111122
  Transmission Date: 20120403
  Serious: No
  Sender: FDA-Public Use
  Company Number: 2011SP003855

PATIENT
  Age: 67 Year
  Sex: Female

DRUGS (7)
  1. VERAPAMIL [Concomitant]
  2. KLONOPIN [Concomitant]
  3. LAMICTAL [Concomitant]
  4. DILANTIN [Concomitant]
  5. LATUDA [Suspect]
     Indication: SCHIZOPHRENIA
     Dosage: 40 MG;HS;ORAL, 80 MG;HS;ORAL
     Route: 048
     Dates: start: 20110718, end: 20110720
  6. LATUDA [Suspect]
     Indication: SCHIZOPHRENIA
     Dosage: 40 MG;HS;ORAL, 80 MG;HS;ORAL
     Route: 048
     Dates: start: 20110721, end: 20110801
  7. MAXZIDE [Concomitant]

REACTIONS (1)
  - ANTICONVULSANT DRUG LEVEL INCREASED [None]
